FAERS Safety Report 9233144 (Version 3)
Quarter: 2013Q4

REPORT INFORMATION
  Report Type: Report from Study
  Country: JP (occurrence: JP)
  Receive Date: 20130416
  Receipt Date: 20131129
  Transmission Date: 20140711
  Serious: Yes (Death, Hospitalization, Other)
  Sender: FDA-Public Use
  Company Number: PHHY2013JP036442

PATIENT
  Age: 85 Year
  Sex: Female

DRUGS (2)
  1. EXELON [Suspect]
     Indication: DEMENTIA ALZHEIMER^S TYPE
     Dosage: 4.5 MG DAILY (1.9MG/24HOURS)
     Route: 062
     Dates: start: 20130111, end: 20130207
  2. EXELON [Suspect]
     Dosage: 9MG DAILY (4.6MG/24HOURS)
     Route: 062
     Dates: start: 20130208

REACTIONS (5)
  - Cardiac arrest [Fatal]
  - Colon cancer [Fatal]
  - Concomitant disease aggravated [Fatal]
  - Melaena [Fatal]
  - Renal failure [Fatal]
